FAERS Safety Report 8967602 (Version 1)
Quarter: 2012Q4

REPORT INFORMATION
  Report Type: 
  Country: US (occurrence: US)
  Receive Date: 20121217
  Receipt Date: 20121217
  Transmission Date: 20130627
  Serious: Yes (Other)
  Sender: FDA-Public Use
  Company Number: US-009507513-1212USA004860

PATIENT
  Sex: Male

DRUGS (3)
  1. PEGINTRON [Suspect]
     Indication: HEPATITIS C
     Dosage: UNK
     Dates: start: 20120520, end: 20121125
  2. RIBAVIRIN [Suspect]
     Indication: HEPATITIS C
     Dosage: UNK
     Route: 048
     Dates: start: 20120520, end: 20121125
  3. VICTRELIS [Suspect]
     Indication: HEPATITIS C
     Dosage: UNK
     Route: 048
     Dates: start: 20120617, end: 20121125

REACTIONS (7)
  - Weight decreased [Unknown]
  - Abnormal loss of weight [Unknown]
  - Alopecia [Unknown]
  - Oedema peripheral [Unknown]
  - Aphagia [Unknown]
  - Abasia [Unknown]
  - Onychomadesis [Unknown]
